FAERS Safety Report 6411685-2 (Version None)
Quarter: 2009Q4

REPORT INFORMATION
  Report Type: 
  Country: None (occurrence: None)
  Receive Date: 20091023
  Receipt Date: 20091009
  Transmission Date: 20100525
  Serious: Yes (Hospitalization, Other)
  Sender: FDA-Public Use
  Company Number: PHHY2009AU37546

PATIENT
  Sex: Male

DRUGS (3)
  1. CLOZARIL [Suspect]
     Dosage: 12.5 MG
     Route: 048
     Dates: start: 20050203
  2. VALPROATE SODIUM [Concomitant]
     Dosage: 0.5 MG, BID
  3. CITALOPRAM HYDROBROMIDE [Concomitant]
     Dosage: 40 MG DAILY

REACTIONS (3)
  - INTENTIONAL SELF-INJURY [None]
  - OPEN WOUND [None]
  - PLASTIC SURGERY [None]
